FAERS Safety Report 6196927-3 (Version None)
Quarter: 2009Q2

REPORT INFORMATION
  Report Type: 
  Country: None (occurrence: None)
  Receive Date: 20090518
  Receipt Date: 20090505
  Transmission Date: 20091009
  Serious: Yes (Other)
  Sender: FDA-Public Use
  Company Number: CIP09001182

PATIENT
  Age: 80 Year
  Sex: Female

DRUGS (2)
  1. FURADANTIN [Suspect]
     Indication: CYSTITIS
     Dosage: 6 DOSAGE FORMS DAILY, ORAL
     Route: 048
     Dates: start: 20090503, end: 20090505
  2. TANAKAN (GINKGO BILOBA EXTRACT) [Concomitant]

REACTIONS (5)
  - COORDINATION ABNORMAL [None]
  - GAIT DISTURBANCE [None]
  - PARAESTHESIA [None]
  - PARAESTHESIA ORAL [None]
  - SENSORY LOSS [None]
